FAERS Safety Report 24423411 (Version 1)
Quarter: 2024Q4

REPORT INFORMATION
  Report Type: Spontaneous
  Country: GB (occurrence: GB)
  Receive Date: 20241010
  Receipt Date: 20241010
  Transmission Date: 20250115
  Serious: Yes (Other)
  Sender: AMGEN
  Company Number: GB-MHRA-EMIS-1680-df13fa38-1429-4423-a01f-252c032f1fc3

PATIENT
  Age: 78 Year
  Sex: Female
  Weight: 62 kg

DRUGS (9)
  1. PROLIA [Suspect]
     Active Substance: DENOSUMAB
     Indication: Product used for unknown indication
     Dosage: 1 DOSAGE FORM, Q6MO
     Route: 058
     Dates: start: 20240925
  2. IBUPROFEN [Concomitant]
     Active Substance: IBUPROFEN
     Dosage: UNK, APPLY UP TO THREE TIMES A DAY100G
     Dates: start: 20240702, end: 20240907
  3. FOODLINK COMPLETE [Concomitant]
     Dosage: UNK, PREPARE WITH 200ML WHOLE MILK.
     Dates: start: 20240702
  4. FOODLINK COMPLETE [Concomitant]
     Dosage: UNK, PREPARE WITH 200ML WHOLE MILK.
     Dates: start: 20240813
  5. METOCLOPRAMIDE [Concomitant]
     Active Substance: METOCLOPRAMIDE
     Indication: Depression
     Dosage: 1 DOSAGE FORM, Q8H
     Dates: start: 20240708, end: 20240925
  6. FLUCLOXACILLIN [Concomitant]
     Active Substance: FLUCLOXACILLIN
     Dosage: 1 DOSAGE FORM, Q6H
     Dates: start: 20240816, end: 20240914
  7. DEVICE\POLYURETHANE [Concomitant]
     Active Substance: DEVICE\POLYURETHANE
     Dosage: UNK, TO BE USED WITH WEEKLY WOUND CARE
     Dates: start: 20240902
  8. DEVICE\POLYURETHANE [Concomitant]
     Active Substance: DEVICE\POLYURETHANE
     Dosage: UNK, TO BE USED WITH WEEKLY WOUND CARE
     Dates: start: 20240923
  9. CALCIUM CARBONATE\CHOLECALCIFEROL [Concomitant]
     Active Substance: CALCIUM CARBONATE\CHOLECALCIFEROL
     Indication: Osteoporosis
     Dosage: 2 DOSAGE FORM, QD
     Dates: start: 20240917

REACTIONS (2)
  - Illness [Recovered/Resolved]
  - Diarrhoea [Recovered/Resolved]

NARRATIVE: CASE EVENT DATE: 20240926
